FAERS Safety Report 8123093-7 (Version None)
Quarter: 2012Q1

REPORT INFORMATION
  Report Type: 
  Country: None (occurrence: None)
  Receive Date: 20120208
  Receipt Date: 20120206
  Transmission Date: 20120608
  Serious: No
  Sender: FDA-Public Use
  Company Number: US-PFIZER INC-2012010559

PATIENT
  Sex: Male
  Weight: 71.202 kg

DRUGS (4)
  1. NICOTROL [Suspect]
     Dosage: 10 MG/ML, TWO SPRAYS EVERY HOUR AS NEEDED
     Route: 045
     Dates: start: 20120123
  2. GABAPENTIN [Concomitant]
     Indication: SLEEP DISORDER
     Dosage: 600 MG, 3X/DAY
  3. NICOTROL [Suspect]
     Indication: SMOKING CESSATION THERAPY
     Dosage: 10 MG/ML, 15-20 TIMES A DAY
     Route: 045
     Dates: start: 20111101, end: 20111201
  4. REMERON [Concomitant]
     Indication: SLEEP DISORDER
     Dosage: 30 MG, 1X/DAY

REACTIONS (2)
  - THROAT IRRITATION [None]
  - DRUG INEFFECTIVE [None]
